FAERS Safety Report 7524980-0 (Version None)
Quarter: 2011Q2

REPORT INFORMATION
  Report Type: 
  Country: None (occurrence: None)
  Receive Date: 20110606
  Receipt Date: 20110531
  Transmission Date: 20111010
  Serious: Yes (Death)
  Sender: FDA-Public Use
  Company Number: US-ASTELLAS-2011US002595

PATIENT
  Sex: Female

DRUGS (1)
  1. ERLOTINIB HYDROCHLORIDE [Suspect]
     Indication: NEOPLASM MALIGNANT
     Dosage: 100 MG, UID/QD
     Dates: start: 20110430, end: 20110501

REACTIONS (2)
  - PNEUMONIA [None]
  - INFECTION [None]
